FAERS Safety Report 8001915-8 (Version None)
Quarter: 2011Q4

REPORT INFORMATION
  Report Type: 
  Country: None (occurrence: None)
  Receive Date: 20111219
  Receipt Date: 20111207
  Transmission Date: 20120403
  Serious: Yes (Other)
  Sender: FDA-Public Use
  Company Number: JP-2011-12381

PATIENT
  Age: 88 Year
  Sex: Female
  Weight: 56 kg

DRUGS (16)
  1. DIOVAN [Concomitant]
  2. ONEALFA (ALFACALCIDOL) TABLET [Concomitant]
  3. PREDNISOLONE [Concomitant]
  4. GASTER D (FAMOTIDINE) TABLET [Concomitant]
  5. CLARITIN [Concomitant]
  6. KETOPROFEN [Concomitant]
  7. SAMSCA [Suspect]
     Indication: FLUID RETENTION
     Dosage: 3.75 MG MILLIGRAM(S), QAM, ORAL, 7.5 MG MILLIGRAM(S), QAM, ORAL,  15 MG MILLIGRAM(S), QAM,  ORAL
     Route: 048
     Dates: start: 20111019, end: 20111026
  8. SAMSCA [Suspect]
     Indication: FLUID RETENTION
     Dosage: 3.75 MG MILLIGRAM(S), QAM, ORAL, 7.5 MG MILLIGRAM(S), QAM, ORAL,  15 MG MILLIGRAM(S), QAM,  ORAL
     Route: 048
     Dates: start: 20111014, end: 20111018
  9. SAMSCA [Suspect]
     Indication: FLUID RETENTION
     Dosage: 3.75 MG MILLIGRAM(S), QAM, ORAL, 7.5 MG MILLIGRAM(S), QAM, ORAL,  15 MG MILLIGRAM(S), QAM,  ORAL
     Route: 048
     Dates: start: 20111012, end: 20111013
  10. ARGAMATE (CALCIUM POLYSTYRENE SULFONATE) [Concomitant]
  11. ALLOPURINOL [Concomitant]
  12. MAGLAX (MAGNESIUM OXIDE) TABLET [Concomitant]
  13. KETAS (IBUDILAST) CAPSULE [Concomitant]
  14. MYONAL (EPERISONE HYDROCHLORIDE) TABLET [Concomitant]
  15. JUSO (SODIUM BICARBONATE) [Concomitant]
  16. LASIX [Concomitant]

REACTIONS (3)
  - BLOOD UREA INCREASED [None]
  - ASPARTATE AMINOTRANSFERASE INCREASED [None]
  - THIRST [None]
